FAERS Safety Report 10926370 (Version 1)
Quarter: 2015Q1

REPORT INFORMATION
  Report Type: Spontaneous
  Country: US (occurrence: US)
  Receive Date: 20150318
  Receipt Date: 20150318
  Transmission Date: 20150721
  Serious: Yes (Other)
  Sender: FDA-Public Use
  Company Number: US-BAYER-2015-037291

PATIENT
  Sex: Female

DRUGS (2)
  1. TYSABRI [Concomitant]
     Active Substance: NATALIZUMAB
     Dosage: UNK
  2. BETASERON [Suspect]
     Active Substance: INTERFERON BETA-1B
     Dosage: UNK UNK, UNK

REACTIONS (8)
  - Headache [None]
  - Contusion [None]
  - Feeling abnormal [None]
  - Memory impairment [None]
  - Mass [None]
  - Pain [None]
  - JC virus test positive [None]
  - Speech disorder [None]

NARRATIVE: CASE EVENT DATE: 2015
